FAERS Safety Report 9025869 (Version 1)
Quarter: 2013Q1

REPORT INFORMATION
  Report Type: Spontaneous
  Country: US (occurrence: None)
  Receive Date: 20130104
  Receipt Date: 20130104
  Transmission Date: 20140127
  Serious: Yes (Death, Hospitalization, Other)
  Sender: FDA-Public Use
  Company Number: IPC201212-000664

PATIENT
  Age: 64 Year
  Sex: Female

DRUGS (2)
  1. HYDROXYCHLOROQUINE SULFATE (HYDROXYCHLOROQUINE SULFATE) (HYDROXYCHLOROQUINE SULFATE) [Suspect]
  2. PREDNISONE [Concomitant]

REACTIONS (8)
  - Cardiomyopathy [None]
  - Cardiomegaly [None]
  - Atrial fibrillation [None]
  - Sick sinus syndrome [None]
  - Respiratory failure [None]
  - Hypoxia [None]
  - Platelet count decreased [None]
  - Myopathy [None]
